FAERS Safety Report 13176927 (Version 1)
Quarter: 2017Q1

REPORT INFORMATION
  Report Type: Spontaneous
  Country: GB (occurrence: GB)
  Receive Date: 20170201
  Receipt Date: 20170201
  Transmission Date: 20170428
  Serious: Yes (Hospitalization, Disabling)
  Sender: FDA-Public Use
  Company Number: GB-ABBVIE-17P-167-1858070-00

PATIENT
  Age: 51 Year
  Sex: Female

DRUGS (2)
  1. HUMIRA [Suspect]
     Active Substance: ADALIMUMAB
     Route: 058
     Dates: start: 20160517
  2. HUMIRA [Suspect]
     Active Substance: ADALIMUMAB
     Indication: CROHN^S DISEASE
     Route: 058
     Dates: start: 20160503, end: 20160503

REACTIONS (9)
  - Synovial cyst [Unknown]
  - Paranoia [Unknown]
  - Hallucination, visual [Unknown]
  - Muscular weakness [Unknown]
  - Hypersensitivity [Unknown]
  - Peripheral sensory neuropathy [Recovered/Resolved with Sequelae]
  - Hypoaesthesia [Unknown]
  - Loss of proprioception [Unknown]
  - Mobility decreased [Unknown]

NARRATIVE: CASE EVENT DATE: 201605
